FAERS Safety Report 20618682 (Version 2)
Quarter: 2022Q4

REPORT INFORMATION
  Report Type: Report from Study
  Country: CA (occurrence: CA)
  Receive Date: 20220322
  Receipt Date: 20221024
  Transmission Date: 20230113
  Serious: Yes (Other)
  Sender: FDA-Public Use
  Company Number: CA-ABBVIE-22K-028-4322716-00

PATIENT
  Age: 60 Year
  Sex: Female

DRUGS (2)
  1. RINVOQ [Suspect]
     Active Substance: UPADACITINIB
     Indication: Rheumatoid arthritis
     Route: 048
     Dates: start: 20210203, end: 2022
  2. RINVOQ [Suspect]
     Active Substance: UPADACITINIB
     Indication: Rheumatoid arthritis
     Dosage: FORM STRENGTH 15MG
     Route: 048
     Dates: start: 2022

REACTIONS (3)
  - Papillary thyroid cancer [Unknown]
  - Rheumatoid arthritis [Unknown]
  - Urticaria [Unknown]

NARRATIVE: CASE EVENT DATE: 20211101
